FAERS Safety Report 15981573 (Version 4)
Quarter: 2019Q4

REPORT INFORMATION
  Report Type: Report from Study
  Country: US (occurrence: US)
  Receive Date: 20190219
  Receipt Date: 20191017
  Transmission Date: 20200122
  Serious: Yes (Hospitalization)
  Sender: FDA-Public Use
  Company Number: US-PFIZER INC-2019058603

PATIENT
  Age: 64 Year
  Sex: Male
  Weight: 84 kg

DRUGS (15)
  1. GABAPENTIN. [Suspect]
     Active Substance: GABAPENTIN
     Indication: OSTEOARTHRITIS
     Dosage: 600 MG, BID
     Route: 048
     Dates: start: 2015
  2. ATORVASTATIN [Concomitant]
     Active Substance: ATORVASTATIN
     Indication: BLOOD CHOLESTEROL INCREASED
     Dosage: UNK
     Dates: start: 2014
  3. OMEPRAZOLE. [Concomitant]
     Active Substance: OMEPRAZOLE
     Indication: GASTROOESOPHAGEAL REFLUX DISEASE
     Dosage: UNK
     Dates: start: 2013
  4. BLINDED PLACEBO [Suspect]
     Active Substance: INVESTIGATIONAL PRODUCT
     Indication: CLOSTRIDIUM DIFFICILE IMMUNISATION
     Dosage: SINGLE DOSE
     Route: 030
     Dates: start: 20190128, end: 20190128
  5. TYLENOL [Concomitant]
     Active Substance: ACETAMINOPHEN
     Indication: OSTEOARTHRITIS
     Dosage: UNK
     Dates: start: 2012
  6. CYCLOBENZAPRINE. [Concomitant]
     Active Substance: CYCLOBENZAPRINE
     Indication: OSTEOARTHRITIS
     Dosage: UNK
     Dates: start: 2012
  7. BLINDED PF-06425090 [Suspect]
     Active Substance: INVESTIGATIONAL PRODUCT
     Indication: CLOSTRIDIUM DIFFICILE IMMUNISATION
     Dosage: SINGLE DOSE
     Route: 030
     Dates: start: 20190128, end: 20190128
  8. TRAZODONE [Suspect]
     Active Substance: TRAZODONE HYDROCHLORIDE
     Indication: INSOMNIA
     Dosage: 50 MG, QD
     Route: 048
     Dates: start: 2015
  9. ASPIRIN. [Concomitant]
     Active Substance: ASPIRIN
     Indication: SUPPLEMENTATION THERAPY
     Dosage: UNK
     Dates: start: 2004
  10. BLINDED PF-06425090 [Suspect]
     Active Substance: INVESTIGATIONAL PRODUCT
     Indication: CLOSTRIDIUM DIFFICILE IMMUNISATION
     Dosage: SINGLE DOSE
     Route: 030
     Dates: start: 20190128, end: 20190128
  11. VIAGRA [Suspect]
     Active Substance: SILDENAFIL CITRATE
     Indication: ERECTILE DYSFUNCTION
     Dosage: 100 MG, PRN
     Route: 048
     Dates: start: 2010
  12. ADVAIR HFA [Concomitant]
     Active Substance: FLUTICASONE PROPIONATE\SALMETEROL XINAFOATE
     Indication: ASTHMA
     Dosage: UNK
     Dates: start: 2012
  13. LISINOPRIL. [Concomitant]
     Active Substance: LISINOPRIL
     Indication: HYPERTENSION
     Dosage: UNK
     Dates: start: 2014
  14. BLINDED PLACEBO [Suspect]
     Active Substance: INVESTIGATIONAL PRODUCT
     Indication: CLOSTRIDIUM DIFFICILE IMMUNISATION
     Dosage: SINGLE DOSE
     Route: 030
     Dates: start: 20190128, end: 20190128
  15. ALBUTEROL. [Concomitant]
     Active Substance: ALBUTEROL
     Indication: ASTHMA
     Dosage: UNK
     Dates: start: 2012

REACTIONS (1)
  - Dizziness [Recovered/Resolved]

NARRATIVE: CASE EVENT DATE: 20190128
